FAERS Safety Report 4303156-4 (Version None)
Quarter: 2004Q1

REPORT INFORMATION
  Report Type: 
  Country: None (occurrence: None)
  Receive Date: 20040223
  Receipt Date: 20040206
  Transmission Date: 20041129
  Serious: Yes (Hospitalization)
  Sender: FDA-Public Use
  Company Number: KDL044329

PATIENT
  Age: 86 Year
  Sex: Male

DRUGS (12)
  1. PROCRIT [Suspect]
     Indication: MYELODYSPLASTIC SYNDROME
     Dosage: 40000 U, WEEKLY
     Dates: start: 20000101
  2. PROPRANOLOL [Concomitant]
  3. FUROSEMIDE [Concomitant]
  4. RANITIDINE [Concomitant]
  5. MULTI-VITAMINS [Concomitant]
  6. THALIDOMIDE [Concomitant]
  7. BLOOD CELLS, PACKED HUMAN [Concomitant]
  8. POTASSIUM CHLORIDE [Concomitant]
  9. GLYCERYL TRINITRATE [Concomitant]
  10. LORAZEPAM [Concomitant]
  11. GATIFLOXACIN [Concomitant]
  12. DIGOXIN [Concomitant]

REACTIONS (6)
  - CARDIAC FAILURE CONGESTIVE [None]
  - MYOCARDIAL INFARCTION [None]
  - PNEUMONIA [None]
  - REFUSAL OF TREATMENT BY PATIENT [None]
  - RENAL FAILURE [None]
  - THERAPEUTIC RESPONSE DECREASED [None]
